FAERS Safety Report 13671308 (Version 1)
Quarter: 2017Q2

REPORT INFORMATION
  Report Type: Spontaneous
  Country: US (occurrence: US)
  Receive Date: 20170620
  Receipt Date: 20170620
  Transmission Date: 20170830
  Serious: No
  Sender: FDA-Public Use
  Company Number: US-ROCHE-635933

PATIENT
  Age: 40 Year
  Sex: Female

DRUGS (4)
  1. XELODA [Suspect]
     Active Substance: CAPECITABINE
     Indication: INFLAMMATORY CARCINOMA OF THE BREAST
     Dosage: DOSAGE DECREASED.
     Route: 048
  2. XELODA [Suspect]
     Active Substance: CAPECITABINE
     Route: 048
  3. COREG [Concomitant]
     Active Substance: CARVEDILOL
     Route: 065
  4. LISINOPRIL. [Concomitant]
     Active Substance: LISINOPRIL
     Route: 065

REACTIONS (3)
  - Incorrect dose administered [Unknown]
  - Dizziness [Unknown]
  - Nausea [Unknown]
